FAERS Safety Report 8830754 (Version 1)
Quarter: 2012Q4

REPORT INFORMATION
  Report Type: 
  Country: US (occurrence: US)
  Receive Date: 20121008
  Receipt Date: 20121008
  Transmission Date: 20130627
  Serious: No
  Sender: FDA-Public Use
  Company Number: US-PFIZER INC-2011237795

PATIENT
  Age: 71 Year
  Sex: Female

DRUGS (3)
  1. FLAGYL [Suspect]
     Dosage: UNK
  2. KEFLEX [Suspect]
     Dosage: UNK
  3. ALLOPURINOL [Suspect]
     Dosage: UNK

REACTIONS (1)
  - Drug hypersensitivity [Unknown]
